FAERS Safety Report 8270678-3 (Version None)
Quarter: 2012Q2

REPORT INFORMATION
  Report Type: 
  Country: None (occurrence: None)
  Receive Date: 20120406
  Receipt Date: 20120323
  Transmission Date: 20120825
  Serious: Yes (Other)
  Sender: FDA-Public Use
  Company Number: 2012000064

PATIENT
  Age: 96 Year
  Sex: Female

DRUGS (11)
  1. NORMIX (RIFAXIMIN) [Concomitant]
  2. CEBION (ASCORBIC ACID) [Concomitant]
  3. AXAGON (ESOMEPRAZOLE) [Concomitant]
  4. BENEXOL B (CYANOCOBALAMIN, PYRIDOXINE, THIAMINE) [Concomitant]
  5. ACEON [Suspect]
     Indication: HYPERTENSION
     Dosage: MG, QD, ORAL
     Route: 048
     Dates: start: 20111207
  6. BENTELAN (BETAMETHASONE SODIUM PHOSPHATE) [Concomitant]
  7. FERRO-GRAD (FERROUS SULFATE) [Concomitant]
  8. ENOXAPARIN SODIUM [Concomitant]
  9. TORADIUR (TORASEMIDE SODIUM) [Suspect]
     Dosage: 5 MG, QD, ORAL
     Route: 048
     Dates: start: 20111207
  10. KANRENOL (POTASSIUM CANRENOATE) [Concomitant]
  11. FOLIC ACID [Concomitant]

REACTIONS (1)
  - SYNCOPE [None]
